FAERS Safety Report 13549697 (Version 1)
Quarter: 2017Q2

REPORT INFORMATION
  Report Type: Spontaneous
  Country: US (occurrence: US)
  Receive Date: 20170516
  Receipt Date: 20170516
  Transmission Date: 20170830
  Serious: No
  Sender: FDA-Public Use
  Company Number: US-TEVA-739262ACC

PATIENT
  Age: 42 Year
  Sex: Male
  Weight: 208 kg

DRUGS (1)
  1. ACETAMINOPHEN W/OXYCODONE [Suspect]
     Active Substance: ACETAMINOPHEN\OXYCODONE HYDROCHLORIDE
     Dosage: STRENGTH: 10/325MG
     Dates: start: 20170125

REACTIONS (1)
  - Drug ineffective [Unknown]

NARRATIVE: CASE EVENT DATE: 20170125
